FAERS Safety Report 13527075 (Version 1)
Quarter: 2017Q2

REPORT INFORMATION
  Report Type: Report from Study
  Country: None (occurrence: US)
  Receive Date: 20170509
  Receipt Date: 20170509
  Transmission Date: 20170830
  Serious: Yes (Other)
  Sender: FDA-Public Use
  Company Number: US-ABBVIE-17K-163-1897534-00

PATIENT
  Age: 11 Year
  Sex: Female

DRUGS (1)
  1. HUMIRA [Suspect]
     Active Substance: ADALIMUMAB
     Indication: JUVENILE IDIOPATHIC ARTHRITIS
     Route: 058
     Dates: start: 20161231, end: 201704

REACTIONS (14)
  - Malaise [Recovered/Resolved]
  - Asthenia [Unknown]
  - Nausea [Recovering/Resolving]
  - Pain [Unknown]
  - Ovarian cyst ruptured [Unknown]
  - Anticipatory anxiety [Recovering/Resolving]
  - Hypersomnia [Unknown]
  - Depression [Unknown]
  - Bronchitis [Unknown]
  - Arthralgia [Recovering/Resolving]
  - Headache [Unknown]
  - Allergic cough [Recovered/Resolved]
  - Injection site swelling [Recovered/Resolved]
  - Juvenile idiopathic arthritis [Unknown]

NARRATIVE: CASE EVENT DATE: 201612
